FAERS Safety Report 6213281-9 (Version None)
Quarter: 2009Q2

REPORT INFORMATION
  Report Type: 
  Country: None (occurrence: None)
  Receive Date: 20090603
  Receipt Date: 20090526
  Transmission Date: 20091009
  Serious: Yes (Hospitalization)
  Sender: FDA-Public Use
  Company Number: BF-MERCK-0905USA03756

PATIENT
  Age: 21 Year
  Sex: Male
  Weight: 58 kg

DRUGS (2)
  1. STROMECTOL [Suspect]
     Indication: FILARIASIS LYMPHATIC
     Route: 048
     Dates: start: 20070113
  2. ALBENDAZOLE [Concomitant]
     Indication: FILARIASIS LYMPHATIC
     Route: 048
     Dates: start: 20070113

REACTIONS (3)
  - ASTHENIA [None]
  - EPILEPSY [None]
  - SYNCOPE [None]
